FAERS Safety Report 10732147 (Version 2)
Quarter: 2015Q2

REPORT INFORMATION
  Report Type: Report from Study
  Country: SG (occurrence: SG)
  Receive Date: 20150123
  Receipt Date: 20150629
  Transmission Date: 20150821
  Serious: Yes (Hospitalization, Other)
  Sender: FDA-Public Use
  Company Number: PHHY2015SG005775

PATIENT
  Age: 62 Year
  Sex: Male
  Weight: 51.6 kg

DRUGS (2)
  1. SANDOSTATIN LAR DEPOT [Suspect]
     Active Substance: OCTREOTIDE ACETATE
     Indication: PANCREATIC NEUROENDOCRINE TUMOUR METASTATIC
     Dosage: 20 MG, UNK
     Route: 030
     Dates: start: 2005
  2. SANGOBION [Concomitant]
     Indication: PRODUCT USED FOR UNKNOWN INDICATION
     Dosage: 10 MG, UNK
     Dates: start: 20140823

REACTIONS (21)
  - Hepatic cirrhosis [Unknown]
  - Malignant neoplasm progression [Unknown]
  - Splenomegaly [Unknown]
  - Hypertrophy [Unknown]
  - Fat tissue increased [Unknown]
  - Diarrhoea [Recovered/Resolved with Sequelae]
  - Cholelithiasis [Unknown]
  - Portal hypertension [Unknown]
  - Clostridium difficile colitis [Unknown]
  - Prostatomegaly [Unknown]
  - Pleural effusion [Unknown]
  - Ascites [Unknown]
  - Electrolyte imbalance [Recovered/Resolved with Sequelae]
  - Escherichia test positive [Unknown]
  - Pyrexia [Recovered/Resolved]
  - Mesenteric vein thrombosis [Unknown]
  - Jaundice cholestatic [Recovered/Resolved]
  - Metastases to liver [Unknown]
  - Sepsis [Recovered/Resolved]
  - Abdominal pain [Recovered/Resolved]
  - Atelectasis [Unknown]

NARRATIVE: CASE EVENT DATE: 20140402
